FAERS Safety Report 16896829 (Version 2)
Quarter: 2019Q4

REPORT INFORMATION
  Report Type: Spontaneous
  Country: NZ (occurrence: NZ)
  Receive Date: 20191008
  Receipt Date: 20191218
  Transmission Date: 20200122
  Serious: Yes (Other)
  Sender: FDA-Public Use
  Company Number: NZ-BAXTER-2019BAX015192

PATIENT
  Age: 23 Year
  Sex: Female

DRUGS (46)
  1. SODIUM [Suspect]
     Active Substance: SODIUM
     Dosage: HPN WITH ZINC (DOSE RE-INTRODUCED)
     Route: 042
  2. SODIUM [Suspect]
     Active Substance: SODIUM
     Dosage: HPN WITHOUT ZINC (TOLERATED PN)
     Route: 042
  3. ATDE [MINERALS] [Suspect]
     Active Substance: MINERALS
     Dosage: HPN WITH ZINC
     Route: 042
     Dates: start: 20190326
  4. PROMETHAZINE [Concomitant]
     Active Substance: PROMETHAZINE HYDROCHLORIDE
     Indication: PRODUCT USED FOR UNKNOWN INDICATION
     Route: 042
     Dates: start: 201810
  5. GLUCOSE INJECTION, 5%, SOLUTION FOR INFUSION [Suspect]
     Active Substance: DEXTROSE
     Dosage: HPN WITH ZINC
     Route: 042
     Dates: start: 20190326
  6. SYNTHAMIN 17 WITH ELECTROLYTES, 10%, SOLUTION FOR INFUSION [Suspect]
     Active Substance: AMINO ACIDS\ELECTROLYTES NOS
     Dosage: HPN WITH OUT ZINC (TOLERATED PN)
     Route: 042
  7. CLINOLEIC, EMULSION FOR INFUSION [Suspect]
     Active Substance: OLIVE OIL\SOYBEAN OIL
     Indication: GASTROINTESTINAL MOTILITY DISORDER
     Dosage: HPN WITH OUT ZINC
     Route: 042
     Dates: start: 201903
  8. CERNEVIT [Suspect]
     Active Substance: VITAMINS
     Indication: GASTROINTESTINAL MOTILITY DISORDER
     Dosage: HPN WITH OUT ZINC
     Route: 042
     Dates: start: 201903
  9. CERNEVIT [Suspect]
     Active Substance: VITAMINS
     Dosage: HPN WITH OUT ZINC (TOLERATED PN)
     Route: 042
  10. POTASSIUM [Suspect]
     Active Substance: POTASSIUM
     Dosage: HPN WITH ZINC (DOSE RE-INTRODUCED)
     Route: 042
  11. CALCIUM [Suspect]
     Active Substance: CALCIUM
     Dosage: HPN WITH ZINC(DOSE RE-INTRODUCED)
     Route: 042
  12. PLASMA-LYTE 148 [Suspect]
     Active Substance: MAGNESIUM CHLORIDE\POTASSIUM CHLORIDE\SODIUM ACETATE\SODIUM CHLORIDE\SODIUM GLUCONATE
     Indication: PRODUCT USED FOR UNKNOWN INDICATION
     Dosage: 1500 ML PER WEEK ON AVERAGE
     Route: 065
  13. CERNEVIT [Suspect]
     Active Substance: VITAMINS
     Dosage: HPN WITH ZINC (DOSE RE-INTRODUCED)
     Route: 042
  14. POTASSIUM [Suspect]
     Active Substance: POTASSIUM
     Dosage: HPN WITH ZINC
     Route: 042
     Dates: start: 20190326
  15. POTASSIUM [Suspect]
     Active Substance: POTASSIUM
     Dosage: HPN WITHOUT ZINC (TOLERATED PN)
     Route: 042
  16. MAGNESIUM [Suspect]
     Active Substance: MAGNESIUM
     Indication: GASTROINTESTINAL MOTILITY DISORDER
     Dosage: HPN WITHOUT ZINC
     Route: 042
     Dates: start: 201903
  17. MAGNESIUM [Suspect]
     Active Substance: MAGNESIUM
     Dosage: HPN WITH ZINC
     Route: 042
     Dates: start: 20190326
  18. PARACETAMOL [Concomitant]
     Active Substance: ACETAMINOPHEN
     Indication: PRODUCT USED FOR UNKNOWN INDICATION
     Dosage: PARACETAMOL LIQUID, NASOGASTRIC ROUTE
     Route: 065
  19. GLUCOSE INJECTION, 5%, SOLUTION FOR INFUSION [Suspect]
     Active Substance: DEXTROSE
     Dosage: HPN WITH ZINC RE-INTRODUCED
     Route: 042
  20. GLUCOSE INJECTION, 5%, SOLUTION FOR INFUSION [Suspect]
     Active Substance: DEXTROSE
     Dosage: HPN WITHOUT ZINC (TOLERATED PN)
     Route: 042
  21. CLINOLEIC, EMULSION FOR INFUSION [Suspect]
     Active Substance: OLIVE OIL\SOYBEAN OIL
     Dosage: HPN WITH OUT ZINC (TOLERATED PN)
     Route: 042
  22. ZINC. [Suspect]
     Active Substance: ZINC
     Indication: GASTROINTESTINAL MOTILITY DISORDER
     Dosage: AS PART OF HPN (INDIVIDUALIZED FORMULA)
     Route: 042
     Dates: start: 20190326
  23. CALCIUM [Suspect]
     Active Substance: CALCIUM
     Indication: GASTROINTESTINAL MOTILITY DISORDER
     Dosage: HPN WITHOUT ZINC
     Route: 042
     Dates: start: 201903
  24. CYCLIZINE [Concomitant]
     Active Substance: CYCLIZINE
     Indication: PRODUCT USED FOR UNKNOWN INDICATION
     Route: 042
     Dates: start: 201810
  25. MONTELUKAST [Concomitant]
     Active Substance: MONTELUKAST SODIUM
     Indication: DRUG THERAPY
     Route: 065
     Dates: start: 201807
  26. GLUCOSE INJECTION, 5%, SOLUTION FOR INFUSION [Suspect]
     Active Substance: DEXTROSE
     Indication: GASTROINTESTINAL MOTILITY DISORDER
     Dosage: HPN WITHOUT ZINC
     Route: 042
     Dates: start: 201903
  27. CLINOLEIC, EMULSION FOR INFUSION [Suspect]
     Active Substance: OLIVE OIL\SOYBEAN OIL
     Dosage: HPN WITH ZINC
     Route: 042
     Dates: start: 20190326
  28. ATDE [MINERALS] [Suspect]
     Active Substance: MINERALS
     Indication: GASTROINTESTINAL MOTILITY DISORDER
     Dosage: HPN WITHOUT ZINC
     Route: 042
     Dates: start: 201903
  29. BUSCOPAN [Concomitant]
     Active Substance: BUTYLSCOPOLAMINE BROMIDE
     Indication: PRODUCT USED FOR UNKNOWN INDICATION
     Route: 042
     Dates: start: 201810
  30. CERNEVIT [Suspect]
     Active Substance: VITAMINS
     Dosage: HPN WITH ZINC
     Route: 042
     Dates: start: 20190326
  31. ZINC. [Suspect]
     Active Substance: ZINC
     Dosage: PRESENT IN HPN FORMULA; DOSE RE-INTRODUCED WRT HEADACHES, HIVES ON TONGUE, TINGLING TONGUE
     Route: 042
  32. CALCIUM [Suspect]
     Active Substance: CALCIUM
     Dosage: HPN WITH ZINC
     Route: 042
     Dates: start: 20190326
  33. ATDE [MINERALS] [Suspect]
     Active Substance: MINERALS
     Dosage: HPN WITH ZINC (DOSE RE-INTRODUCED)
     Route: 042
  34. METOPROLOL TARTRATE. [Concomitant]
     Active Substance: METOPROLOL TARTRATE
     Indication: POSTURAL ORTHOSTATIC TACHYCARDIA SYNDROME
     Dosage: NASOGASTRIC ROUTE?METOPROLOL TARTARATE LIQUID
     Route: 065
     Dates: start: 201807
  35. SYNTHAMIN 17 WITH ELECTROLYTES, 10%, SOLUTION FOR INFUSION [Suspect]
     Active Substance: AMINO ACIDS\ELECTROLYTES NOS
     Indication: GASTROINTESTINAL MOTILITY DISORDER
     Dosage: HPN WITH OUT ZINC
     Route: 042
     Dates: start: 201903
  36. OLIMEL E [Suspect]
     Active Substance: AMINO ACIDS\DEXTROSE\ELECTROLYTES NOS\SOYBEAN OIL
     Indication: GASTROINTESTINAL MOTILITY DISORDER
     Route: 065
  37. MAGNESIUM [Suspect]
     Active Substance: MAGNESIUM
     Dosage: HPN WITH ZINC(DOSE RE-INTRODUCED)
     Route: 042
  38. CALCIUM [Suspect]
     Active Substance: CALCIUM
     Dosage: HPN WITHOUT ZINC(TOLERATED PN)
     Route: 042
  39. ATDE [MINERALS] [Suspect]
     Active Substance: MINERALS
     Dosage: HPN WITHOUT ZINC (TOLERATED PN)
     Route: 042
  40. SYNTHAMIN 17 WITH ELECTROLYTES, 10%, SOLUTION FOR INFUSION [Suspect]
     Active Substance: AMINO ACIDS\ELECTROLYTES NOS
     Dosage: HPN WITH ZINC
     Route: 042
     Dates: start: 20190326
  41. SYNTHAMIN 17 WITH ELECTROLYTES, 10%, SOLUTION FOR INFUSION [Suspect]
     Active Substance: AMINO ACIDS\ELECTROLYTES NOS
     Dosage: HPN WITH ZINC RE-INTRODUCED
     Route: 042
  42. CLINOLEIC, EMULSION FOR INFUSION [Suspect]
     Active Substance: OLIVE OIL\SOYBEAN OIL
     Dosage: HPN WITH ZINC DOSE RE-INTRODUCED
     Route: 042
  43. SODIUM [Suspect]
     Active Substance: SODIUM
     Indication: GASTROINTESTINAL MOTILITY DISORDER
     Dosage: HPN WITHOUT ZINC
     Route: 042
     Dates: start: 201903
  44. SODIUM [Suspect]
     Active Substance: SODIUM
     Dosage: HPN WITH ZINC
     Route: 042
     Dates: start: 20190326
  45. POTASSIUM [Suspect]
     Active Substance: POTASSIUM
     Indication: GASTROINTESTINAL MOTILITY DISORDER
     Dosage: HPN WITHOUT ZINC
     Route: 042
     Dates: start: 201903
  46. MAGNESIUM [Suspect]
     Active Substance: MAGNESIUM
     Dosage: HPN WITHOUT ZINC(TOLERATED PN)
     Route: 042

REACTIONS (4)
  - Headache [Not Recovered/Not Resolved]
  - Paraesthesia oral [Not Recovered/Not Resolved]
  - Urticaria [Not Recovered/Not Resolved]
  - Oral mucosal blistering [Not Recovered/Not Resolved]

NARRATIVE: CASE EVENT DATE: 20190725
